FAERS Safety Report 23677188 (Version 1)
Quarter: 2024Q1

REPORT INFORMATION
  Report Type: Spontaneous
  Country: IT (occurrence: IT)
  Receive Date: 20240327
  Receipt Date: 20240327
  Transmission Date: 20240410
  Serious: Yes (Other)
  Sender: FDA-Public Use
  Company Number: None

PATIENT
  Age: 54 Year
  Sex: Male
  Weight: 82 kg

DRUGS (3)
  1. STIVARGA [Suspect]
     Active Substance: REGORAFENIB
     Indication: Glioblastoma
     Dosage: 160 MG, QD, FOR 21 DAYS
     Route: 048
     Dates: start: 20230922, end: 20231012
  2. LASIX [Concomitant]
     Active Substance: FUROSEMIDE
     Indication: Blood pressure increased
     Dosage: 25 MG, UNK, IF BRACHIAL ARTERIAL PRESSURE} 150/90 MMHG
     Route: 048
  3. LEVETIRACETAM [Concomitant]
     Active Substance: LEVETIRACETAM
     Dosage: UNK

REACTIONS (5)
  - Thrombocytopenia [Recovered/Resolved]
  - Bradycardia [Unknown]
  - Hypertension [Recovered/Resolved]
  - Blood thyroid stimulating hormone increased [Unknown]
  - Off label use [None]

NARRATIVE: CASE EVENT DATE: 20230922
